FAERS Safety Report 9698986 (Version 2)
Quarter: 2014Q1

REPORT INFORMATION
  Report Type: Spontaneous
  Country: US (occurrence: US)
  Receive Date: 20131120
  Receipt Date: 20140328
  Transmission Date: 20141002
  Serious: Yes (Other)
  Sender: FDA-Public Use
  Company Number: US-PURDUE-USA-2013-0108549

PATIENT
  Age: 56 Year
  Sex: Female

DRUGS (8)
  1. DILAUDID INJECTION [Suspect]
     Indication: SURGERY
     Dosage: 0.5 MG, UNK
     Route: 042
     Dates: start: 20131020, end: 20131107
  2. DILAUDID INJECTION [Suspect]
     Indication: PAIN
  3. DILAUDID TABLET [Suspect]
     Indication: SURGERY
     Dosage: 2 MG, UNK
     Route: 048
     Dates: start: 20131023, end: 20131107
  4. DILAUDID TABLET [Suspect]
     Indication: PAIN
  5. ABILIFY [Concomitant]
     Indication: PRODUCT USED FOR UNKNOWN INDICATION
     Dosage: UNK
     Route: 048
  6. KLONOPIN [Concomitant]
     Indication: PRODUCT USED FOR UNKNOWN INDICATION
     Dosage: UNK
     Route: 048
  7. TRILEPTAL [Concomitant]
     Indication: PRODUCT USED FOR UNKNOWN INDICATION
     Dosage: UNK
     Route: 048
  8. MESALAMINE [Concomitant]
     Indication: CROHN^S DISEASE
     Dosage: UNK
     Route: 048

REACTIONS (10)
  - Overdose [Recovered/Resolved]
  - Sepsis [Unknown]
  - Drug hypersensitivity [Recovered/Resolved]
  - Seizure like phenomena [Unknown]
  - Respiratory arrest [Unknown]
  - Dysarthria [Unknown]
  - Eye movement disorder [Unknown]
  - Anxiety [Unknown]
  - Sedation [Unknown]
  - Miosis [Unknown]
